FAERS Safety Report 24636428 (Version 1)
Quarter: 2024Q4

REPORT INFORMATION
  Report Type: Spontaneous
  Country: US (occurrence: US)
  Receive Date: 20241119
  Receipt Date: 20241119
  Transmission Date: 20250114
  Serious: Yes (Other)
  Sender: BRISTOL-MYERS SQUIBB COMPANY
  Company Number: US-EXELIXIS-EXL-2024-002055

PATIENT

DRUGS (2)
  1. NIVOLUMAB [Suspect]
     Active Substance: NIVOLUMAB
     Indication: Product used for unknown indication
     Dosage: MONTHLY
  2. CABOMETYX [Suspect]
     Active Substance: CABOZANTINIB S-MALATE
     Indication: Product used for unknown indication
     Dosage: 40 MG, QD

REACTIONS (4)
  - Neuropathy peripheral [Unknown]
  - Retinal artery occlusion [Unknown]
  - Hyperkeratosis [Unknown]
  - Protein urine [Unknown]

NARRATIVE: CASE EVENT DATE: 20241101
